FAERS Safety Report 8820842 (Version 1)
Quarter: 2012Q4

REPORT INFORMATION
  Report Type: 
  Country: RO (occurrence: RO)
  Receive Date: 20121002
  Receipt Date: 20121002
  Transmission Date: 20130627
  Serious: Yes (Death)
  Sender: FDA-Public Use
  Company Number: RO-ROCHE-1139950

PATIENT
  Age: 54 Year
  Sex: Female

DRUGS (5)
  1. AVASTIN [Suspect]
     Indication: LUNG ADENOCARCINOMA
     Route: 065
     Dates: start: 200906, end: 201202
  2. PACLITAXEL [Suspect]
     Indication: LUNG ADENOCARCINOMA
     Route: 065
     Dates: start: 200905, end: 200908
  3. TARCEVA [Suspect]
     Indication: LUNG ADENOCARCINOMA
     Route: 065
     Dates: start: 201202, end: 201205
  4. CARBOPLATIN [Suspect]
     Indication: LUNG ADENOCARCINOMA
     Route: 065
     Dates: start: 200905, end: 200908
  5. ZOMETA [Concomitant]
     Route: 065
     Dates: end: 201202

REACTIONS (3)
  - Metastases to bone [Fatal]
  - Metastases to lung [Fatal]
  - Metastases to central nervous system [Fatal]
